FAERS Safety Report 19385572 (Version 2)
Quarter: 2021Q3

REPORT INFORMATION
  Report Type: Spontaneous
  Country: DE (occurrence: DE)
  Receive Date: 20210608
  Receipt Date: 20210819
  Transmission Date: 20211014
  Serious: Yes (Hospitalization)
  Sender: FDA-Public Use
  Company Number: DE-ORGANON-O2106DEU000104

PATIENT
  Age: 90 Year
  Sex: Male
  Weight: 90 kg

DRUGS (13)
  1. COLECALCIFEROL [Concomitant]
     Active Substance: CHOLECALCIFEROL
     Dosage: 1000 IU, 0?2?0?0, TABLET, REPORTED AS COLECALCIFEROL (VITAMIN D)
  2. FENTANYL. [Concomitant]
     Active Substance: FENTANYL
     Dosage: 12 MCG/H, CHANGE EVERY 3 DAYS, TRANSDERMAL PATCH
     Route: 062
  3. TORASEMID [Concomitant]
     Active Substance: TORSEMIDE
     Dosage: 50 MG, 1?0?0?0, TABLET
  4. ABSTRAL [Concomitant]
     Active Substance: FENTANYL CITRATE
     Dosage: 100 MCG, AS NEEDED, TABLET
     Route: 060
  5. FOLIC ACID. [Concomitant]
     Active Substance: FOLIC ACID
     Dosage: 5 MG, 1?0?1?0, TABLET
  6. MIRTAZAPINE. [Suspect]
     Active Substance: MIRTAZAPINE
     Dosage: 15 MG, 0?0?0?0.5, TABLET
  7. ASPIRIN. [Suspect]
     Active Substance: ASPIRIN
     Dosage: 100 MG, 0?0?1?0, TABLET, REPORTED AS ASS 100
  8. MOVICOL PLAIN [Concomitant]
     Active Substance: POLYETHYLENE GLYCOL 3350\POTASSIUM CHLORIDE\SODIUM BICARBONATE\SODIUM CHLORIDE
     Dosage: 1?0?0?0, POWDER
  9. VOMEX [Concomitant]
     Active Substance: DIMENHYDRINATE
     Dosage: 150 MG, AS NEEDED
  10. ESOMEPRAZOL ABZ [Concomitant]
     Active Substance: ESOMEPRAZOLE MAGNESIUM
     Dosage: 20 MG, 0?0?1?0, TABLET
  11. METAMIZOLE [Concomitant]
     Active Substance: METAMIZOLE
     Dosage: 40?40?40?40, DROPS
  12. METOPROLOL. [Concomitant]
     Active Substance: METOPROLOL
     Dosage: 47.5 MG, 1?0?0?0, PROLONGED?RELEASE TABLET
  13. HALDOL [Concomitant]
     Active Substance: HALOPERIDOL
     Dosage: 3?3?3?0, DROPS

REACTIONS (3)
  - Anaemia [Not Recovered/Not Resolved]
  - Abdominal pain [Not Recovered/Not Resolved]
  - Flank pain [Not Recovered/Not Resolved]
